FAERS Safety Report 14113576 (Version 2)
Quarter: 2017Q4

REPORT INFORMATION
  Report Type: Spontaneous
  Country: US (occurrence: US)
  Receive Date: 20171023
  Receipt Date: 20171031
  Transmission Date: 20180321
  Serious: Yes (Hospitalization)
  Sender: FDA-Public Use
  Company Number: US-ASTRAZENECA-2017SF06348

PATIENT
  Age: 28758 Day
  Sex: Female
  Weight: 52.6 kg

DRUGS (15)
  1. MOVANTIK [Suspect]
     Active Substance: NALOXEGOL OXALATE
     Indication: CONSTIPATION
     Route: 048
     Dates: start: 20171002
  2. TRAMADOL. [Concomitant]
     Active Substance: TRAMADOL
     Indication: BACK PAIN
     Dosage: 50 MG, EVERY 6 HOURS, AS REQUIRED
     Route: 048
  3. DSS [Concomitant]
     Active Substance: DEXTRAN SULFATE SODIUM
  4. MOVANTIK [Suspect]
     Active Substance: NALOXEGOL OXALATE
     Indication: ILL-DEFINED DISORDER
     Route: 048
     Dates: start: 20171002
  5. NORVASC [Concomitant]
     Active Substance: AMLODIPINE BESYLATE
     Indication: BLOOD PRESSURE ABNORMAL
     Route: 048
     Dates: start: 2007
  6. OXYCODONE [Concomitant]
     Active Substance: OXYCODONE
     Indication: ABDOMINAL PAIN UPPER
     Dosage: 20 MG, EVERY 4 HOURS AS NEEDED
     Route: 048
     Dates: start: 201601
  7. MOVANTIK [Suspect]
     Active Substance: NALOXEGOL OXALATE
     Indication: CONSTIPATION
     Route: 048
     Dates: start: 20170929
  8. MOVANTIK [Suspect]
     Active Substance: NALOXEGOL OXALATE
     Indication: CONSTIPATION
     Dosage: TWO 100 MG IN THE MORNING AND TWO 100 MG AT NIGHT
     Route: 048
     Dates: start: 20171020
  9. MURALAX [Concomitant]
     Indication: CONSTIPATION
     Dosage: AS REQUIRED
     Route: 048
  10. BENICAR [Concomitant]
     Active Substance: OLMESARTAN MEDOXOMIL
     Indication: BLOOD PRESSURE ABNORMAL
     Route: 048
     Dates: start: 2007
  11. MOVANTIK [Suspect]
     Active Substance: NALOXEGOL OXALATE
     Indication: ILL-DEFINED DISORDER
     Route: 048
     Dates: start: 20170929
  12. LORAZEPAM. [Concomitant]
     Active Substance: LORAZEPAM
     Indication: MUSCLE SPASMS
     Dosage: ONE HALF TO ONE TABLET EVERY 6 HOURS AS NEEDED
     Route: 048
     Dates: start: 20171010
  13. MOVANTIK [Suspect]
     Active Substance: NALOXEGOL OXALATE
     Indication: ILL-DEFINED DISORDER
     Dosage: TWO 100 MG IN THE MORNING AND TWO 100 MG AT NIGHT
     Route: 048
     Dates: start: 20171020
  14. METHADONE [Concomitant]
     Active Substance: METHADONE HYDROCHLORIDE
     Indication: ILL-DEFINED DISORDER
     Route: 048
     Dates: start: 201707
  15. TRAMADOL. [Concomitant]
     Active Substance: TRAMADOL
     Indication: NECK PAIN
     Dosage: 50 MG, EVERY 6 HOURS, AS REQUIRED
     Route: 048

REACTIONS (14)
  - Product use in unapproved indication [Unknown]
  - Irritable bowel syndrome [Unknown]
  - Flatulence [Unknown]
  - Hyperhidrosis [Unknown]
  - Abdominal pain [Unknown]
  - Chills [Unknown]
  - Off label use [Unknown]
  - Abdominal pain [Unknown]
  - Yawning [Unknown]
  - Abdominal pain upper [Unknown]
  - Intentional product misuse [Unknown]
  - Drug ineffective [Not Recovered/Not Resolved]
  - Bowel movement irregularity [Unknown]
  - Product use issue [Unknown]

NARRATIVE: CASE EVENT DATE: 20170929
